FAERS Safety Report 6748078-4 (Version None)
Quarter: 2010Q2

REPORT INFORMATION
  Report Type: 
  Country: None (occurrence: None)
  Receive Date: 20100531
  Receipt Date: 20100517
  Transmission Date: 20101027
  Serious: Yes (Hospitalization, Other)
  Sender: FDA-Public Use
  Company Number: US-ASTRAZENECA-2010SE24633

PATIENT
  Age: 41 Year
  Sex: Female

DRUGS (13)
  1. SEROQUEL [Suspect]
     Route: 048
     Dates: start: 20031230
  2. CLORAZEPATE DIPOTASSIUM [Concomitant]
     Dates: start: 20031230
  3. ZONEGRAN [Concomitant]
     Dates: start: 20040113
  4. ABILIFY [Concomitant]
     Dates: start: 20040303
  5. TOPAMAX [Concomitant]
     Dates: start: 20040310
  6. LEXAPRO [Concomitant]
     Dates: start: 20040409
  7. ZYPREXA [Concomitant]
     Dates: start: 20040428
  8. EFFEXOR XR [Concomitant]
     Dates: start: 20040421
  9. AVANDIA [Concomitant]
     Dates: start: 20070515
  10. ATIVAN [Concomitant]
     Dates: start: 20070515
  11. CYMBALTA [Concomitant]
     Dates: start: 20070515
  12. LISINOPRIL [Concomitant]
     Dates: start: 20070515
  13. LITHIUM CARBONATE CAP [Concomitant]
     Dates: start: 20070515

REACTIONS (5)
  - ASTHMA [None]
  - DIABETES MELLITUS INADEQUATE CONTROL [None]
  - HYPERLIPIDAEMIA [None]
  - NEUROPATHY PERIPHERAL [None]
  - TYPE 2 DIABETES MELLITUS [None]
